FAERS Safety Report 9424083 (Version 2)
Quarter: 2013Q4

REPORT INFORMATION
  Report Type: Spontaneous
  Country: US (occurrence: US)
  Receive Date: 20130729
  Receipt Date: 20131003
  Transmission Date: 20140711
  Serious: Yes (Other)
  Sender: FDA-Public Use
  Company Number: PHEH2013US015751

PATIENT
  Sex: Male

DRUGS (9)
  1. TRILEPTAL [Suspect]
     Indication: AFFECTIVE DISORDER
     Dosage: 300 MG, PER DAY
     Dates: start: 20101020
  2. TRILEPTAL [Suspect]
     Indication: AFFECT LABILITY
  3. ABILIFY [Concomitant]
     Dosage: UNK UKN, UNK
  4. ABILIFY [Concomitant]
     Dosage: 15 MG, UNK
  5. PRILOSEC [Concomitant]
     Dosage: UNK UKN, UNK
  6. ZOCOR [Concomitant]
     Dosage: UNK UKN, UNK
  7. HYDROXINE [Concomitant]
     Dosage: UNK UKN, UNK
  8. COGENTIN [Concomitant]
     Dosage: UNK UKN, UNK
  9. VISTARIL [Suspect]

REACTIONS (2)
  - Glucose tolerance impaired [Unknown]
  - Weight decreased [Unknown]
